FAERS Safety Report 23015784 (Version 2)
Quarter: 2023Q4

REPORT INFORMATION
  Report Type: Report from Study
  Country: VN (occurrence: VN)
  Receive Date: 20231002
  Receipt Date: 20231018
  Transmission Date: 20240110
  Serious: Yes (Other)
  Sender: FDA-Public Use
  Company Number: VN-PFIZER INC-PV202300093296

PATIENT
  Age: 63 Year
  Sex: Male
  Weight: 60.7 kg

DRUGS (14)
  1. LINEZOLID [Suspect]
     Active Substance: LINEZOLID
     Indication: Tuberculosis
     Dosage: 1200 MG, 1X/DAY
     Route: 048
     Dates: start: 20230406, end: 20230430
  2. DELAMANID [Suspect]
     Active Substance: DELAMANID
     Indication: Tuberculosis
     Dosage: 300 MG, 1X/DAY
     Route: 048
     Dates: start: 20230406
  3. DELAMANID [Suspect]
     Active Substance: DELAMANID
     Dosage: 300 MG
     Route: 048
     Dates: start: 20230523
  4. LEVOFLOXACIN [Suspect]
     Active Substance: LEVOFLOXACIN
     Indication: Tuberculosis
     Dosage: 1000 MG, 1X/DAY
     Route: 048
     Dates: start: 20230406
  5. LEVOFLOXACIN [Suspect]
     Active Substance: LEVOFLOXACIN
     Dosage: 1000 MG
     Route: 048
     Dates: start: 20230523
  6. CLOFAZIMINE [Suspect]
     Active Substance: CLOFAZIMINE
     Indication: Tuberculosis
     Dosage: 100 MG, 1X/DAY
     Route: 048
     Dates: start: 20230406
  7. CLOFAZIMINE [Suspect]
     Active Substance: CLOFAZIMINE
     Dosage: 100 MG
     Route: 048
     Dates: start: 20230523
  8. BEDAQUILINE [Suspect]
     Active Substance: BEDAQUILINE
     Indication: Tuberculosis
     Dosage: 200 MG, 1X/DAY
     Route: 048
     Dates: start: 20230406
  9. BEDAQUILINE [Suspect]
     Active Substance: BEDAQUILINE
     Dosage: 200 MG
     Route: 048
     Dates: start: 20230523
  10. BEDAQUILINE [Suspect]
     Active Substance: BEDAQUILINE
     Dosage: 100 MG, 1X/DAY
     Dates: start: 20230603
  11. INSULIN HUMAN [Concomitant]
     Active Substance: INSULIN HUMAN
     Dosage: 15 IU, DAILY
     Route: 058
     Dates: start: 202303
  12. ESOMEPRAZOLE [Concomitant]
     Active Substance: ESOMEPRAZOLE
     Dosage: 20 MG, DAILY
     Route: 048
     Dates: start: 20230424, end: 20230510
  13. CEFTAZIDIME [Concomitant]
     Active Substance: CEFTAZIDIME
     Dosage: 3 G, DAILY
     Route: 042
     Dates: start: 20230330, end: 20230510
  14. CARBOCYSTEINE [Concomitant]
     Active Substance: CARBOCYSTEINE
     Dosage: 1500 MG, DAILY
     Route: 048
     Dates: start: 20230330, end: 20230410

REACTIONS (1)
  - Optic neuritis [Recovered/Resolved with Sequelae]

NARRATIVE: CASE EVENT DATE: 20230504
